FAERS Safety Report 5909148-3 (Version None)
Quarter: 2008Q4

REPORT INFORMATION
  Report Type: 
  Country: None (occurrence: None)
  Receive Date: 20081006
  Receipt Date: 20080926
  Transmission Date: 20090506
  Serious: Yes (Hospitalization)
  Sender: FDA-Public Use
  Company Number: IE-PFIZER INC-2008082281

PATIENT

DRUGS (1)
  1. LYRICA [Suspect]

REACTIONS (1)
  - SEDATION [None]
